FAERS Safety Report 10119201 (Version 1)
Quarter: 2014Q2

REPORT INFORMATION
  Report Type: Spontaneous
  Country: US (occurrence: US)
  Receive Date: 20140425
  Receipt Date: 20140425
  Transmission Date: 20141212
  Serious: No
  Sender: FDA-Public Use
  Company Number: US-PFIZER INC-2014113820

PATIENT
  Age: 64 Year
  Sex: Female
  Weight: 89.8 kg

DRUGS (1)
  1. SOLU-MEDROL [Suspect]
     Dosage: HIGH DOSE FOR 5 DAYS
     Route: 042

REACTIONS (1)
  - Hallucination [Recovered/Resolved]
